FAERS Safety Report 10665791 (Version 5)
Quarter: 2015Q1

REPORT INFORMATION
  Report Type: Spontaneous
  Country: US (occurrence: US)
  Receive Date: 20141219
  Receipt Date: 20150226
  Transmission Date: 20150720
  Serious: No
  Sender: FDA-Public Use
  Company Number: US-009507513-0208USA00617

PATIENT
  Sex: Male

DRUGS (1)
  1. PROPECIA [Suspect]
     Active Substance: FINASTERIDE
     Indication: ALOPECIA
     Dosage: 1 MG, QD
     Route: 048
     Dates: start: 200205, end: 200810

REACTIONS (7)
  - Premature ejaculation [Unknown]
  - Drug ineffective [Unknown]
  - Erectile dysfunction [Unknown]
  - Psoriasis [Unknown]
  - Hypogonadism male [Unknown]
  - Drug ineffective for unapproved indication [Unknown]
  - Sexual dysfunction [Unknown]

NARRATIVE: CASE EVENT DATE: 2005
